FAERS Safety Report 16664396 (Version 3)
Quarter: 2019Q4

REPORT INFORMATION
  Report Type: Report from Study
  Country: US (occurrence: US)
  Receive Date: 20190802
  Receipt Date: 20191122
  Transmission Date: 20200122
  Serious: Yes (Death, Life-Threatening, Hospitalization, Other)
  Sender: FDA-Public Use
  Company Number: US-BRISTOL-MYERS SQUIBB COMPANY-BMS-2019-068485

PATIENT
  Age: 60 Year
  Sex: Male
  Weight: 63 kg

DRUGS (5)
  1. NIVOLUMAB [Suspect]
     Active Substance: NIVOLUMAB
     Indication: BLADDER CANCER
     Dosage: 3 MILLIGRAM/KILOGRAM
     Route: 042
     Dates: start: 20190523, end: 20190612
  2. IPILIMUMAB [Suspect]
     Active Substance: IPILIMUMAB
     Indication: BLADDER CANCER
     Dosage: 1 MILLIGRAM/KILOGRAM
     Route: 042
     Dates: start: 20190523, end: 20190612
  3. CABOZANTINIB [Suspect]
     Active Substance: CABOZANTINIB
     Indication: BLADDER CANCER
     Dosage: 40 MILLIGRAM, QD
     Route: 048
     Dates: start: 20190523, end: 20190626
  4. GEMCITABINE HYDROCHLORIDE. [Suspect]
     Active Substance: GEMCITABINE HYDROCHLORIDE
     Indication: BLADDER CANCER
     Dosage: UNK
     Route: 065
     Dates: start: 20190712
  5. CISPLATIN. [Suspect]
     Active Substance: CISPLATIN
     Indication: BLADDER CANCER
     Dosage: UNK
     Route: 065
     Dates: start: 20190712

REACTIONS (24)
  - Acute respiratory distress syndrome [Unknown]
  - Acidosis [Unknown]
  - Hypermagnesaemia [Unknown]
  - Blood alkaline phosphatase increased [Unknown]
  - Blood bilirubin increased [Unknown]
  - Nausea [Unknown]
  - Neutrophil count decreased [Unknown]
  - Pleural effusion [Unknown]
  - Blood urea increased [Unknown]
  - Pneumonitis [Unknown]
  - Hyperglycaemia [Unknown]
  - Pulmonary oedema [Unknown]
  - Sepsis [Unknown]
  - Alanine aminotransferase increased [Unknown]
  - Aspartate aminotransferase increased [Unknown]
  - Vomiting [Unknown]
  - Chronic kidney disease [Unknown]
  - Lymphocyte count decreased [Unknown]
  - Small intestinal obstruction [Unknown]
  - Prothrombin time prolonged [Unknown]
  - Hypoalbuminaemia [Unknown]
  - Muscular weakness [Unknown]
  - White blood cell count decreased [Unknown]
  - Multiple organ dysfunction syndrome [Fatal]

NARRATIVE: CASE EVENT DATE: 20190610
